FAERS Safety Report 8607171 (Version 3)
Quarter: 2013Q4

REPORT INFORMATION
  Report Type: Spontaneous
  Country: US (occurrence: US)
  Receive Date: 20120611
  Receipt Date: 20131129
  Transmission Date: 20140711
  Serious: Yes (Hospitalization, Disabling, Other)
  Sender: FDA-Public Use
  Company Number: US-ASTRAZENECA-2012SE35596

PATIENT
  Age: 577 Month
  Sex: Male

DRUGS (34)
  1. NEXIUM [Suspect]
     Indication: GASTROOESOPHAGEAL REFLUX DISEASE
     Route: 048
     Dates: start: 199908, end: 201305
  2. PRILOSEC [Suspect]
     Indication: HELICOBACTER INFECTION
     Route: 048
     Dates: start: 20000809
  3. PREVACID [Concomitant]
     Dates: start: 199911
  4. ROLAIDS [Concomitant]
  5. TUMS [Concomitant]
  6. BUPROPION [Concomitant]
     Indication: DEPRESSION
  7. TOPROL XL [Concomitant]
  8. ISOSORB MONO [Concomitant]
  9. KLOR CON [Concomitant]
  10. ASPIRIN [Concomitant]
     Indication: CARDIAC DISORDER
     Route: 048
  11. ASPIRIN [Concomitant]
     Indication: CARDIAC DISORDER
  12. ASPIRIN [Concomitant]
     Indication: CARDIAC DISORDER
     Dates: start: 20001128
  13. SIMVASTATIN [Concomitant]
  14. PENICILLIN VK [Concomitant]
     Indication: TOOTH DISORDER
  15. PENICILLIN VK [Concomitant]
     Indication: TOOTH ABSCESS
  16. PROMETH [Concomitant]
  17. NITRO [Concomitant]
     Indication: CHEST PAIN
  18. NAPROXEN [Concomitant]
     Indication: INFLAMMATION
  19. FUROSEMIDE [Concomitant]
     Indication: FLUID RETENTION
     Route: 048
  20. ZOLPIDEM [Concomitant]
     Indication: SLEEP DISORDER
  21. METOPROLOL TARTRATE [Concomitant]
     Indication: BLOOD PRESSURE ABNORMAL
     Route: 048
  22. METOPROLOL TARTRATE [Concomitant]
     Indication: BLOOD PRESSURE ABNORMAL
     Route: 048
     Dates: start: 20010306
  23. PREDNISONE [Concomitant]
  24. GEMFIBROZIL [Concomitant]
  25. AMBIEN [Concomitant]
     Indication: SLEEP DISORDER
     Dosage: 10MG ONE TAB AT BEDTIME AS NEEDED
     Route: 048
  26. BACTRIM DS [Concomitant]
     Dosage: 800-160MG  ONE TABLET BY MOUTH TWICE A DAY
     Route: 048
  27. LISINOPRIL [Concomitant]
     Route: 048
  28. HYDROCODONE ACETAMINOPHEN [Concomitant]
     Indication: PAIN
     Dosage: 325MG  PER NEED EVERY 6 HRS
     Route: 048
  29. MORPHINE [Concomitant]
     Indication: PAIN
     Route: 048
  30. LOPID [Concomitant]
     Route: 048
     Dates: start: 20041105
  31. LOPID [Concomitant]
     Route: 048
  32. NIACIN [Concomitant]
  33. NORVASC [Concomitant]
  34. PLAVIX [Concomitant]

REACTIONS (17)
  - Myocardial infarction [Unknown]
  - Angina unstable [Unknown]
  - Throat cancer [Unknown]
  - Cerebrovascular accident [Unknown]
  - Epididymitis [Unknown]
  - Osteoporosis [Unknown]
  - Multiple fractures [Unknown]
  - Carpal tunnel syndrome [Unknown]
  - Arthritis [Unknown]
  - Lung disorder [Unknown]
  - Cardiovascular disorder [Unknown]
  - Diabetes mellitus [Unknown]
  - Peripheral arterial occlusive disease [Unknown]
  - Intervertebral disc degeneration [Unknown]
  - Intervertebral disc protrusion [Unknown]
  - Coronary artery disease [Unknown]
  - Chronic obstructive pulmonary disease [Unknown]
